FAERS Safety Report 10597172 (Version 1)
Quarter: 2014Q4

REPORT INFORMATION
  Report Type: Spontaneous
  Country: FR (occurrence: FR)
  Receive Date: 20141121
  Receipt Date: 20141121
  Transmission Date: 20150529
  Serious: Yes (Other)
  Sender: FDA-Public Use
  Company Number: FR-CIPLA LTD.-2014FR02003

PATIENT

DRUGS (6)
  1. AMITRIPTYLINE [Suspect]
     Active Substance: AMITRIPTYLINE
     Dosage: 350 MG
  2. TEMAZEPAM. [Suspect]
     Active Substance: TEMAZEPAM
     Dosage: 70 MG
  3. DILTIAZEM [Suspect]
     Active Substance: DILTIAZEM
     Dosage: 1680 MG
  4. DIAZEPAM. [Suspect]
     Active Substance: DIAZEPAM
     Dosage: 35 MG
  5. CITALOPRAM [Suspect]
     Active Substance: CITALOPRAM HYDROBROMIDE
     Dosage: 70 MG, UNK
  6. DIHYDROCODEINE [Suspect]
     Active Substance: DIHYDROCODEINE
     Dosage: 840 MG

REACTIONS (3)
  - Overdose [Recovered/Resolved]
  - Toxicity to various agents [Recovered/Resolved]
  - Atrioventricular block complete [Recovered/Resolved]
